FAERS Safety Report 8271640-7 (Version None)
Quarter: 2012Q2

REPORT INFORMATION
  Report Type: 
  Country: None (occurrence: None)
  Receive Date: 20120410
  Receipt Date: 20120402
  Transmission Date: 20120825
  Serious: Yes (Death, Other)
  Sender: FDA-Public Use
  Company Number: JP-GLAXOSMITHKLINE-B0781416A

PATIENT
  Sex: Female
  Weight: 59 kg

DRUGS (4)
  1. BLOOD TRANSFUSION [Concomitant]
     Route: 065
     Dates: start: 20120123, end: 20120202
  2. HYCAMTIN [Suspect]
     Indication: OVARIAN CANCER
     Dosage: 1.25MGM2 PER DAY
     Route: 042
     Dates: start: 20120116, end: 20120120
  3. RAMELTEON [Concomitant]
     Indication: PROPHYLAXIS OF NAUSEA AND VOMITING
     Dosage: .3MG PER DAY
     Route: 042
     Dates: start: 20120116, end: 20120120
  4. DEXAMETHASONE SODIUM PHOSPHATE [Concomitant]
     Indication: PROPHYLAXIS OF NAUSEA AND VOMITING
     Dosage: 6.6MG PER DAY
     Route: 065
     Dates: start: 20120116, end: 20120120

REACTIONS (4)
  - OVARIAN CANCER [None]
  - DISSEMINATED INTRAVASCULAR COAGULATION [None]
  - FEBRILE NEUTROPENIA [None]
  - PLATELET COUNT DECREASED [None]
